FAERS Safety Report 7565750-7 (Version None)
Quarter: 2011Q2

REPORT INFORMATION
  Report Type: 
  Country: None (occurrence: None)
  Receive Date: 20110616
  Receipt Date: 20110609
  Transmission Date: 20111010
  Serious: Yes (Hospitalization, Other)
  Sender: FDA-Public Use
  Company Number: 2010SP034934

PATIENT
  Age: 31 Year
  Sex: Female
  Weight: 117.9352 kg

DRUGS (2)
  1. NUVARING [Suspect]
     Indication: CONTRACEPTION
     Dates: start: 20080801, end: 20080901
  2. TYLENOL-500 [Concomitant]

REACTIONS (5)
  - PULMONARY INFARCTION [None]
  - THROMBOSIS [None]
  - LOSS OF EMPLOYMENT [None]
  - LYMPHADENOPATHY [None]
  - PULMONARY EMBOLISM [None]
